FAERS Safety Report 18875241 (Version 1)
Quarter: 2021Q1

REPORT INFORMATION
  Report Type: Spontaneous
  Country: IT (occurrence: IT)
  Receive Date: 20210211
  Receipt Date: 20210211
  Transmission Date: 20210420
  Serious: Yes (Death, Other)
  Sender: FDA-Public Use
  Company Number: IT-AMGEN-ITASP2021019202

PATIENT
  Sex: Female

DRUGS (11)
  1. CYTARABINE. [Concomitant]
     Active Substance: CYTARABINE
     Indication: OVARIAN CANCER
     Dosage: 100 MILLIGRAM/SQ. METER D1?7
  2. FLUDARABINE [Concomitant]
     Active Substance: FLUDARABINE PHOSPHATE
     Dosage: 30 MILLIGRAM/SQ. METER D1?5
  3. DECITABINE. [Concomitant]
     Active Substance: DECITABINE
     Indication: ACUTE ERYTHROID LEUKAEMIA
     Dosage: UNK
  4. TREOSULFAN [Concomitant]
     Active Substance: TREOSULFAN
     Dosage: UNK
  5. FILGRASTIM [Suspect]
     Active Substance: FILGRASTIM
     Indication: NEUTROPENIA
     Dosage: UNK
     Route: 065
  6. TACROLIMUS. [Concomitant]
     Active Substance: TACROLIMUS
     Dosage: UNK (FROM +5 TO DAY 100(LEVEL 5?15 NG/ML))
  7. VENETOCLAX. [Concomitant]
     Active Substance: VENETOCLAX
     Indication: ACUTE ERYTHROID LEUKAEMIA
     Dosage: UNK
  8. ETOPOSIDE. [Concomitant]
     Active Substance: ETOPOSIDE
     Indication: OVARIAN CANCER
     Dosage: 100 MILLIGRAM/SQ. METER D1?5
  9. METHOTREXATE. [Concomitant]
     Active Substance: METHOTREXATE
     Dosage: 15 GRAM PER KILOGRAM QD+1
  10. OLAPARIB. [Concomitant]
     Active Substance: OLAPARIB
     Indication: OVARIAN CANCER
     Dosage: UNK
  11. IDARUBICIN [Concomitant]
     Active Substance: IDARUBICIN
     Indication: OVARIAN CANCER
     Dosage: 12 MILLIGRAM/SQ. METER D1?D3, D1?D3?D5

REACTIONS (3)
  - Ovarian epithelial cancer recurrent [Unknown]
  - Acute myeloid leukaemia [Fatal]
  - Therapy non-responder [Unknown]
